FAERS Safety Report 13917124 (Version 1)
Quarter: 2017Q3

REPORT INFORMATION
  Report Type: Spontaneous
  Country: US (occurrence: None)
  Receive Date: 20170827
  Receipt Date: 20170827
  Transmission Date: 20171127
  Serious: No
  Sender: FDA-Public Use
  Company Number: None

PATIENT
  Sex: Female

DRUGS (1)
  1. HUMIRA [Suspect]
     Active Substance: ADALIMUMAB
     Indication: PSORIATIC ARTHROPATHY
     Route: 058
     Dates: start: 20170808, end: 20170808

REACTIONS (6)
  - Flushing [None]
  - Paraesthesia [None]
  - Blood glucose increased [None]
  - Nonspecific reaction [None]
  - Dyspnoea [None]
  - Therapy cessation [None]
